FAERS Safety Report 12934885 (Version 4)
Quarter: 2017Q1

REPORT INFORMATION
  Report Type: Report from Study
  Country: NL (occurrence: NL)
  Receive Date: 20161112
  Receipt Date: 20170124
  Transmission Date: 20170428
  Serious: Yes (Hospitalization, Other)
  Sender: FDA-Public Use
  Company Number: NL-BRISTOL-MYERS SQUIBB COMPANY-BMS-2016-094225

PATIENT
  Age: 62 Year
  Sex: Male
  Weight: 145.5 kg

DRUGS (43)
  1. NIVOLUMAB [Suspect]
     Active Substance: NIVOLUMAB
     Indication: PRODUCT USED FOR UNKNOWN INDICATION
     Dosage: 435 MG, Q2WK
     Route: 042
     Dates: start: 20150908, end: 20150908
  2. NIVOLUMAB [Suspect]
     Active Substance: NIVOLUMAB
     Indication: PRODUCT USED FOR UNKNOWN INDICATION
     Dosage: 432 MG, Q2WK
     Route: 042
     Dates: start: 20160210, end: 20160210
  3. TEMAZEPAM. [Concomitant]
     Active Substance: TEMAZEPAM
     Indication: PRODUCT USED FOR UNKNOWN INDICATION
     Dosage: UNK
     Route: 065
     Dates: start: 20140406
  4. NIVOLUMAB [Suspect]
     Active Substance: NIVOLUMAB
     Indication: PRODUCT USED FOR UNKNOWN INDICATION
     Dosage: 432 MG, Q2WK
     Route: 042
     Dates: start: 20151201, end: 20151201
  5. NIVOLUMAB [Suspect]
     Active Substance: NIVOLUMAB
     Indication: PRODUCT USED FOR UNKNOWN INDICATION
     Dosage: 438 MG, Q2WK
     Route: 042
     Dates: start: 20160810, end: 20160810
  6. METFORMIN [Concomitant]
     Active Substance: METFORMIN HYDROCHLORIDE
     Indication: PRODUCT USED FOR UNKNOWN INDICATION
     Dosage: UNK
     Route: 065
     Dates: start: 20161019
  7. NIVOLUMAB [Suspect]
     Active Substance: NIVOLUMAB
     Indication: MALIGNANT MELANOMA
     Dosage: 435 MG, Q2WK
     Route: 042
     Dates: start: 20150505, end: 20150505
  8. NIVOLUMAB [Suspect]
     Active Substance: NIVOLUMAB
     Indication: PRODUCT USED FOR UNKNOWN INDICATION
     Dosage: 432 MG, Q2WK
     Route: 042
     Dates: start: 20150602, end: 20150602
  9. NIVOLUMAB [Suspect]
     Active Substance: NIVOLUMAB
     Indication: PRODUCT USED FOR UNKNOWN INDICATION
     Dosage: 432 MG, Q2WK
     Route: 042
     Dates: start: 20150616, end: 20150616
  10. NIVOLUMAB [Suspect]
     Active Substance: NIVOLUMAB
     Indication: PRODUCT USED FOR UNKNOWN INDICATION
     Dosage: 426 MG, Q2WK
     Route: 042
     Dates: start: 20160113, end: 20160113
  11. NIVOLUMAB [Suspect]
     Active Substance: NIVOLUMAB
     Indication: PRODUCT USED FOR UNKNOWN INDICATION
     Dosage: 426 MG, Q2WK
     Route: 042
     Dates: start: 20160122, end: 20160122
  12. NIVOLUMAB [Suspect]
     Active Substance: NIVOLUMAB
     Indication: PRODUCT USED FOR UNKNOWN INDICATION
     Dosage: 435 MG, Q2WK
     Route: 042
     Dates: start: 20160323, end: 20160323
  13. NIVOLUMAB [Suspect]
     Active Substance: NIVOLUMAB
     Indication: PRODUCT USED FOR UNKNOWN INDICATION
     Dosage: 441 MG, Q2WK
     Route: 042
     Dates: start: 20160601, end: 20160601
  14. NIVOLUMAB [Suspect]
     Active Substance: NIVOLUMAB
     Indication: PRODUCT USED FOR UNKNOWN INDICATION
     Dosage: 444 MG, Q2WK
     Route: 042
     Dates: start: 20160616, end: 20160616
  15. NIVOLUMAB [Suspect]
     Active Substance: NIVOLUMAB
     Indication: PRODUCT USED FOR UNKNOWN INDICATION
     Dosage: 438 MG, Q2WK
     Route: 042
     Dates: start: 20160728, end: 20160728
  16. NIVOLUMAB [Suspect]
     Active Substance: NIVOLUMAB
     Indication: PRODUCT USED FOR UNKNOWN INDICATION
     Dosage: 432 MG, Q2WK
     Route: 042
     Dates: start: 20150519
  17. NIVOLUMAB [Suspect]
     Active Substance: NIVOLUMAB
     Indication: PRODUCT USED FOR UNKNOWN INDICATION
     Dosage: 435 MG, Q2WK
     Route: 042
     Dates: start: 20150630, end: 20150630
  18. NIVOLUMAB [Suspect]
     Active Substance: NIVOLUMAB
     Indication: PRODUCT USED FOR UNKNOWN INDICATION
     Dosage: 432 MG, Q2WK
     Route: 042
     Dates: start: 20150825, end: 20150825
  19. NIVOLUMAB [Suspect]
     Active Substance: NIVOLUMAB
     Indication: PRODUCT USED FOR UNKNOWN INDICATION
     Dosage: 435 MG, Q2WK
     Route: 042
     Dates: start: 20150922, end: 20150922
  20. NIVOLUMAB [Suspect]
     Active Substance: NIVOLUMAB
     Indication: PRODUCT USED FOR UNKNOWN INDICATION
     Dosage: 435 MG, Q2WK
     Route: 042
     Dates: start: 20151230, end: 20151230
  21. NIVOLUMAB [Suspect]
     Active Substance: NIVOLUMAB
     Indication: PRODUCT USED FOR UNKNOWN INDICATION
     Dosage: 435 MG, Q2WK
     Route: 042
     Dates: start: 20151006, end: 20151006
  22. NIVOLUMAB [Suspect]
     Active Substance: NIVOLUMAB
     Indication: PRODUCT USED FOR UNKNOWN INDICATION
     Dosage: 435 MG, Q2WK
     Route: 042
     Dates: start: 20151020, end: 20151020
  23. NIVOLUMAB [Suspect]
     Active Substance: NIVOLUMAB
     Indication: PRODUCT USED FOR UNKNOWN INDICATION
     Dosage: 432 MG, Q2WK
     Route: 042
     Dates: start: 20151103, end: 20151103
  24. NIVOLUMAB [Suspect]
     Active Substance: NIVOLUMAB
     Indication: PRODUCT USED FOR UNKNOWN INDICATION
     Dosage: 432 MG, Q2WK
     Route: 042
     Dates: start: 20160224, end: 20160224
  25. NIVOLUMAB [Suspect]
     Active Substance: NIVOLUMAB
     Indication: PRODUCT USED FOR UNKNOWN INDICATION
     Dosage: 435 MG, Q2WK
     Route: 042
     Dates: start: 20160406, end: 20160406
  26. NIVOLUMAB [Suspect]
     Active Substance: NIVOLUMAB
     Indication: PRODUCT USED FOR UNKNOWN INDICATION
     Dosage: 435 MG, Q2WK
     Route: 042
     Dates: start: 20160420, end: 20160420
  27. NIVOLUMAB [Suspect]
     Active Substance: NIVOLUMAB
     Indication: PRODUCT USED FOR UNKNOWN INDICATION
     Dosage: 432 MG, Q2WK
     Route: 042
     Dates: start: 20160908, end: 20160908
  28. NIVOLUMAB [Suspect]
     Active Substance: NIVOLUMAB
     Indication: PRODUCT USED FOR UNKNOWN INDICATION
     Dosage: 432 MG, Q2WK
     Route: 042
     Dates: start: 20161006, end: 20161006
  29. ENALAPRIL [Concomitant]
     Active Substance: ENALAPRIL
     Indication: PRODUCT USED FOR UNKNOWN INDICATION
     Dosage: UNK
     Route: 065
     Dates: start: 20141106
  30. NIVOLUMAB [Suspect]
     Active Substance: NIVOLUMAB
     Indication: PRODUCT USED FOR UNKNOWN INDICATION
     Dosage: 432 MG, Q2WK
     Route: 042
     Dates: start: 20150714, end: 20150714
  31. NIVOLUMAB [Suspect]
     Active Substance: NIVOLUMAB
     Indication: PRODUCT USED FOR UNKNOWN INDICATION
     Dosage: 435 MG, Q2WK
     Route: 042
     Dates: start: 20151117, end: 20151117
  32. NIVOLUMAB [Suspect]
     Active Substance: NIVOLUMAB
     Indication: PRODUCT USED FOR UNKNOWN INDICATION
     Dosage: 435 MG, Q2WK
     Route: 042
     Dates: start: 20160518, end: 20160518
  33. NIVOLUMAB [Suspect]
     Active Substance: NIVOLUMAB
     Indication: PRODUCT USED FOR UNKNOWN INDICATION
     Dosage: 438 MG, Q2WK
     Route: 042
     Dates: start: 20160714, end: 20160714
  34. NIVOLUMAB [Suspect]
     Active Substance: NIVOLUMAB
     Indication: PRODUCT USED FOR UNKNOWN INDICATION
     Dosage: 426 MG, Q2WK
     Route: 042
     Dates: start: 20161020, end: 20161020
  35. NIVOLUMAB [Suspect]
     Active Substance: NIVOLUMAB
     Indication: PRODUCT USED FOR UNKNOWN INDICATION
     Dosage: 435 MG, Q2WK
     Route: 042
     Dates: start: 20150728, end: 20150728
  36. NIVOLUMAB [Suspect]
     Active Substance: NIVOLUMAB
     Indication: PRODUCT USED FOR UNKNOWN INDICATION
     Dosage: 435 MG, Q2WK
     Route: 042
     Dates: start: 20160506, end: 20160506
  37. NIVOLUMAB [Suspect]
     Active Substance: NIVOLUMAB
     Indication: PRODUCT USED FOR UNKNOWN INDICATION
     Dosage: 438 MG, Q2WK
     Route: 042
     Dates: start: 20160630, end: 20160630
  38. NIVOLUMAB [Suspect]
     Active Substance: NIVOLUMAB
     Indication: PRODUCT USED FOR UNKNOWN INDICATION
     Dosage: 438 MG, Q2WK
     Route: 042
     Dates: start: 20160825, end: 20160825
  39. CICLOPIROX. [Concomitant]
     Active Substance: CICLOPIROX
     Indication: PRODUCT USED FOR UNKNOWN INDICATION
     Dosage: UNK
     Route: 065
     Dates: start: 20160314
  40. NIVOLUMAB [Suspect]
     Active Substance: NIVOLUMAB
     Indication: PRODUCT USED FOR UNKNOWN INDICATION
     Dosage: 435 MG, Q2WK
     Route: 042
     Dates: start: 20150811, end: 20150811
  41. NIVOLUMAB [Suspect]
     Active Substance: NIVOLUMAB
     Indication: PRODUCT USED FOR UNKNOWN INDICATION
     Dosage: 435 MG, Q2WK
     Route: 042
     Dates: start: 20151215, end: 20151215
  42. NIVOLUMAB [Suspect]
     Active Substance: NIVOLUMAB
     Indication: PRODUCT USED FOR UNKNOWN INDICATION
     Dosage: 435 MG, Q2WK
     Route: 042
     Dates: start: 20160309, end: 20160309
  43. NIVOLUMAB [Suspect]
     Active Substance: NIVOLUMAB
     Indication: PRODUCT USED FOR UNKNOWN INDICATION
     Dosage: 432 MG, Q2WK
     Route: 042
     Dates: start: 20160922, end: 20160922

REACTIONS (2)
  - Hyperglycaemia [Recovered/Resolved]
  - Ketoacidosis [Recovered/Resolved]

NARRATIVE: CASE EVENT DATE: 20161103
